FAERS Safety Report 9587495 (Version 1)
Quarter: 2013Q4

REPORT INFORMATION
  Report Type: Spontaneous
  Country: CA (occurrence: CA)
  Receive Date: 20131003
  Receipt Date: 20131003
  Transmission Date: 20140711
  Serious: Yes (Life-Threatening, Hospitalization, Other)
  Sender: FDA-Public Use
  Company Number: CA-009507513-1309CAN013030

PATIENT
  Age: 36 Year
  Sex: Male
  Weight: 58 kg

DRUGS (5)
  1. ISENTRESS [Suspect]
     Indication: PRODUCT USED FOR UNKNOWN INDICATION
     Dosage: 400 MG, BID
     Route: 048
  2. ISENTRESS [Suspect]
     Dosage: 400 MG, BID
     Route: 048
  3. TRUVADA [Suspect]
     Indication: PRODUCT USED FOR UNKNOWN INDICATION
     Dosage: 1 DF, QD
     Route: 048
  4. TRUVADA [Suspect]
     Dosage: 1 DF, QD
     Route: 048
  5. VITAMIN D (UNSPECIFIED) [Concomitant]
     Indication: PRODUCT USED FOR UNKNOWN INDICATION

REACTIONS (5)
  - Cardio-respiratory arrest [Unknown]
  - Cardiogenic shock [Unknown]
  - Palpitations [Unknown]
  - Torsade de pointes [Unknown]
  - Vertigo [Unknown]
